FAERS Safety Report 18738166 (Version 2)
Quarter: 2021Q1

REPORT INFORMATION
  Report Type: Spontaneous
  Country: JP (occurrence: JP)
  Receive Date: 20210113
  Receipt Date: 20210205
  Transmission Date: 20210419
  Serious: Yes (Death, Life-Threatening, Hospitalization, Other)
  Sender: FDA-Public Use
  Company Number: JP-B.I. PHARMACEUTICALS,INC./RIDGEFIELD-2021-BI-075927

PATIENT
  Age: 84 Year
  Sex: Female

DRUGS (1)
  1. PRAZAXA [Suspect]
     Active Substance: DABIGATRAN ETEXILATE MESYLATE
     Indication: ATRIAL FIBRILLATION
     Route: 048
     Dates: end: 20210104

REACTIONS (5)
  - Septic shock [Fatal]
  - Cardiac failure [Unknown]
  - Gastrointestinal necrosis [Unknown]
  - Activated partial thromboplastin time prolonged [Unknown]
  - Mesenteric artery embolism [Unknown]

NARRATIVE: CASE EVENT DATE: 20201210
